FAERS Safety Report 6266814-0 (Version None)
Quarter: 2009Q3

REPORT INFORMATION
  Report Type: 
  Country: None (occurrence: None)
  Receive Date: 20090709
  Receipt Date: 20090709
  Transmission Date: 20100115
  Serious: No
  Sender: FDA-Public Use
  Company Number: None

PATIENT

DRUGS (1)
  1. ACTONEL [Suspect]
     Dosage: 1 TABLET DOSE EARLY A.M.
     Dates: start: 20090101, end: 20090401

REACTIONS (3)
  - ANGINA PECTORIS [None]
  - ASTHENIA [None]
  - LISTLESS [None]
